FAERS Safety Report 15901944 (Version 1)
Quarter: 2019Q1

REPORT INFORMATION
  Report Type: Spontaneous
  Country: US (occurrence: US)
  Receive Date: 20190201
  Receipt Date: 20190201
  Transmission Date: 20190417
  Serious: No
  Sender: FDA-Public Use
  Company Number: US-VEROSCIENCE-VER-2019-00002

PATIENT

DRUGS (1)
  1. CYCLOSET [Suspect]
     Active Substance: BROMOCRIPTINE MESYLATE
     Dosage: 0.8 MG MILLIGRAM(S), UNK

REACTIONS (2)
  - Exfoliative rash [Unknown]
  - Rash pruritic [Unknown]

NARRATIVE: CASE EVENT DATE: 20190121
